FAERS Safety Report 6068673-8 (Version None)
Quarter: 2009Q1

REPORT INFORMATION
  Report Type: 
  Country: None (occurrence: None)
  Receive Date: 20090206
  Receipt Date: 20090128
  Transmission Date: 20090719
  Serious: Yes (Other)
  Sender: FDA-Public Use
  Company Number: B0520645A

PATIENT
  Sex: Male

DRUGS (7)
  1. PAROXETINE HCL [Suspect]
     Indication: DRUG USE FOR UNKNOWN INDICATION
     Dates: start: 20030729
  2. DIAZEPAM [Concomitant]
     Dates: start: 20050218
  3. DOTHIEPIN [Concomitant]
     Dates: start: 20030211
  4. CIPRALEX [Concomitant]
     Dates: start: 20030311
  5. OMEPRAZOLE [Concomitant]
  6. CIPROFLOXACIN [Concomitant]
  7. FLUANXOL [Concomitant]

REACTIONS (21)
  - AGITATION [None]
  - CONFUSIONAL STATE [None]
  - DISSOCIATION [None]
  - DISTURBANCE IN ATTENTION [None]
  - DIZZINESS [None]
  - DRUG WITHDRAWAL SYNDROME [None]
  - FATIGUE [None]
  - FLAT AFFECT [None]
  - HEADACHE [None]
  - INFLUENZA LIKE ILLNESS [None]
  - LETHARGY [None]
  - LOSS OF LIBIDO [None]
  - MEMORY IMPAIRMENT [None]
  - MOOD SWINGS [None]
  - NIGHTMARE [None]
  - PARAESTHESIA [None]
  - SLEEP DISORDER [None]
  - SUICIDAL IDEATION [None]
  - TREMOR [None]
  - VERTIGO [None]
  - WEIGHT INCREASED [None]
